FAERS Safety Report 24584475 (Version 5)
Quarter: 2025Q1

REPORT INFORMATION
  Report Type: Spontaneous
  Country: US (occurrence: US)
  Receive Date: 20241106
  Receipt Date: 20250108
  Transmission Date: 20250409
  Serious: Yes (Other)
  Sender: PFIZER
  Company Number: US-PFIZER INC-202400293678

PATIENT
  Age: 13 Year
  Sex: Male
  Weight: 37.19 kg

DRUGS (2)
  1. NGENLA [Suspect]
     Active Substance: SOMATROGON-GHLA
     Indication: Growth hormone deficiency
     Dosage: 24MG ONCE A WEEK BY INJECTION
     Dates: start: 20241005
  2. NGENLA [Suspect]
     Active Substance: SOMATROGON-GHLA
     Dates: start: 202410

REACTIONS (3)
  - Renal atrophy [Not Recovered/Not Resolved]
  - Kidney small [Unknown]
  - Device leakage [Unknown]
